FAERS Safety Report 4919960-5 (Version None)
Quarter: 2006Q1

REPORT INFORMATION
  Report Type: 
  Country: None (occurrence: None)
  Receive Date: 20060216
  Receipt Date: 20060202
  Transmission Date: 20060701
  Serious: Yes (Other)
  Sender: FDA-Public Use
  Company Number: A-CH2006-11572

PATIENT
  Sex: Female

DRUGS (3)
  1. TRACLEER [Suspect]
     Indication: PULMONARY HYPERTENSION
     Dosage: SEE IMAGE
     Route: 048
  2. SILDENAFIL CITRATE [Concomitant]
  3. ILOPROST (ILOPROST) [Concomitant]

REACTIONS (1)
  - PLATELET COUNT DECREASED [None]
